FAERS Safety Report 21178924 (Version 4)
Quarter: 2022Q4

REPORT INFORMATION
  Report Type: Spontaneous
  Country: US (occurrence: US)
  Receive Date: 20220805
  Receipt Date: 20221004
  Transmission Date: 20230113
  Serious: Yes (Hospitalization, Other)
  Sender: FDA-Public Use
  Company Number: US-UNITED THERAPEUTICS-UNT-2022-015051

PATIENT
  Sex: Female

DRUGS (16)
  1. ORENITRAM [Suspect]
     Active Substance: TREPROSTINIL
     Indication: Pulmonary arterial hypertension
     Dosage: UNK
     Route: 048
     Dates: start: 20210406
  2. ORENITRAM [Suspect]
     Active Substance: TREPROSTINIL
     Dosage: UNK
     Route: 048
     Dates: start: 20220619
  3. ORENITRAM [Suspect]
     Active Substance: TREPROSTINIL
     Dosage: UNK
     Route: 048
     Dates: start: 20220628
  4. ORENITRAM [Suspect]
     Active Substance: TREPROSTINIL
     Dosage: 15 MG, TID
     Route: 048
     Dates: end: 202207
  5. ORENITRAM [Suspect]
     Active Substance: TREPROSTINIL
     Dosage: 10 MG, TID
     Route: 048
     Dates: start: 202207, end: 202207
  6. ORENITRAM [Suspect]
     Active Substance: TREPROSTINIL
     Dosage: 14 MG (2 TABLETS OF 5 MG AND 4 TABLETS OF 1 MG), TID
     Route: 048
     Dates: start: 202207
  7. ORENITRAM [Suspect]
     Active Substance: TREPROSTINIL
     Dosage: 6 MG, TID
     Route: 048
  8. ORENITRAM [Suspect]
     Active Substance: TREPROSTINIL
     Indication: Pulmonary arterial hypertension
     Dosage: UNK
     Route: 048
  9. ORENITRAM [Suspect]
     Active Substance: TREPROSTINIL
     Indication: Pulmonary arterial hypertension
     Dosage: UNK
     Route: 048
  10. REMODULIN [Suspect]
     Active Substance: TREPROSTINIL
     Indication: Pulmonary arterial hypertension
     Dosage: UNK, CONTINUING
     Route: 058
  11. REMODULIN [Suspect]
     Active Substance: TREPROSTINIL
     Dosage: UNK, CONTINUING
     Route: 058
     Dates: start: 202007
  12. REMODULIN [Suspect]
     Active Substance: TREPROSTINIL
     Dosage: 0.0055 ?G/KG, CONTINUING
     Route: 058
  13. REMODULIN [Suspect]
     Active Substance: TREPROSTINIL
     Dosage: 0.076 ?G/KG, CONTINUING
     Route: 058
  14. REMODULIN [Suspect]
     Active Substance: TREPROSTINIL
     Dosage: UNK, CONTINUING
     Route: 058
     Dates: start: 20220706, end: 20220707
  15. ONDANSETRON [Suspect]
     Active Substance: ONDANSETRON
     Indication: Nausea
     Dosage: UNK
     Route: 065
     Dates: start: 202207
  16. ONDANSETRON [Suspect]
     Active Substance: ONDANSETRON
     Indication: Vomiting

REACTIONS (18)
  - Dyspnoea [Not Recovered/Not Resolved]
  - Abdominal pain upper [Recovered/Resolved]
  - Fatigue [Not Recovered/Not Resolved]
  - Pain in jaw [Not Recovered/Not Resolved]
  - Diarrhoea [Not Recovered/Not Resolved]
  - Vomiting [Not Recovered/Not Resolved]
  - Nausea [Not Recovered/Not Resolved]
  - Therapy non-responder [Unknown]
  - Product use issue [Unknown]
  - Anxiety [Not Recovered/Not Resolved]
  - Pain [Not Recovered/Not Resolved]
  - Bone pain [Not Recovered/Not Resolved]
  - Flatulence [Not Recovered/Not Resolved]
  - Morning sickness [Recovered/Resolved]
  - Neuritis [Unknown]
  - Somnolence [Unknown]
  - Head discomfort [Unknown]
  - Palpitations [Unknown]

NARRATIVE: CASE EVENT DATE: 20220101
